FAERS Safety Report 22631319 (Version 1)
Quarter: 2023Q2

REPORT INFORMATION
  Report Type: Spontaneous
  Country: CN (occurrence: CN)
  Receive Date: 20230623
  Receipt Date: 20230623
  Transmission Date: 20230722
  Serious: Yes (Death, Hospitalization, Other)
  Sender: FDA-Public Use
  Company Number: CN-STERISCIENCE B.V.-2023-ST-001529

PATIENT
  Age: 45 Year
  Sex: Male

DRUGS (26)
  1. VANCOMYCIN [Suspect]
     Active Substance: VANCOMYCIN
     Indication: Haematological infection
     Dosage: UNK
     Route: 065
  2. VANCOMYCIN [Suspect]
     Active Substance: VANCOMYCIN
     Indication: Abdominal infection
  3. VANCOMYCIN [Suspect]
     Active Substance: VANCOMYCIN
     Indication: Klebsiella infection
  4. MEROPENEM [Suspect]
     Active Substance: MEROPENEM
     Indication: Haematological infection
     Dosage: UNK
     Route: 065
  5. MEROPENEM [Suspect]
     Active Substance: MEROPENEM
     Indication: Abdominal infection
  6. MEROPENEM [Suspect]
     Active Substance: MEROPENEM
     Indication: Klebsiella infection
  7. MEROPENEM [Suspect]
     Active Substance: MEROPENEM
     Indication: Sepsis
  8. IMIPENEM [Suspect]
     Active Substance: IMIPENEM
     Indication: Haematological infection
     Dosage: UNK
     Route: 065
  9. IMIPENEM [Suspect]
     Active Substance: IMIPENEM
     Indication: Abdominal infection
  10. IMIPENEM [Suspect]
     Active Substance: IMIPENEM
     Indication: Klebsiella infection
  11. FOSFOMYCIN [Suspect]
     Active Substance: FOSFOMYCIN
     Indication: Haematological infection
     Dosage: UNK
     Route: 065
  12. FOSFOMYCIN [Suspect]
     Active Substance: FOSFOMYCIN
     Indication: Abdominal infection
  13. FOSFOMYCIN [Suspect]
     Active Substance: FOSFOMYCIN
     Indication: Klebsiella infection
  14. AMIKACIN [Suspect]
     Active Substance: AMIKACIN
     Indication: Haematological infection
     Dosage: UNK
     Route: 065
  15. AMIKACIN [Suspect]
     Active Substance: AMIKACIN
     Indication: Abdominal infection
  16. AMIKACIN [Suspect]
     Active Substance: AMIKACIN
     Indication: Klebsiella infection
  17. TIGECYCLINE [Suspect]
     Active Substance: TIGECYCLINE
     Indication: Haematological infection
     Dosage: UNK
     Route: 065
  18. TIGECYCLINE [Suspect]
     Active Substance: TIGECYCLINE
     Indication: Abdominal infection
  19. TIGECYCLINE [Suspect]
     Active Substance: TIGECYCLINE
     Indication: Klebsiella infection
  20. CEFTAZIDIME [Suspect]
     Active Substance: CEFTAZIDIME
     Indication: Haematological infection
     Dosage: UNK
     Route: 065
  21. CEFTAZIDIME [Suspect]
     Active Substance: CEFTAZIDIME
     Indication: Abdominal infection
  22. CEFTAZIDIME [Suspect]
     Active Substance: CEFTAZIDIME
     Indication: Klebsiella infection
  23. AVIBACTAM SODIUM\CEFTAZIDIME [Suspect]
     Active Substance: AVIBACTAM SODIUM\CEFTAZIDIME
     Indication: Haematological infection
     Dosage: 2.5 GRAM, BID (12 HOURS)
     Route: 042
  24. AVIBACTAM SODIUM\CEFTAZIDIME [Suspect]
     Active Substance: AVIBACTAM SODIUM\CEFTAZIDIME
     Indication: Abdominal infection
  25. AVIBACTAM SODIUM\CEFTAZIDIME [Suspect]
     Active Substance: AVIBACTAM SODIUM\CEFTAZIDIME
     Indication: Klebsiella infection
  26. AVIBACTAM SODIUM\CEFTAZIDIME [Suspect]
     Active Substance: AVIBACTAM SODIUM\CEFTAZIDIME
     Indication: Sepsis

REACTIONS (2)
  - Treatment failure [Fatal]
  - Off label use [Unknown]
